FAERS Safety Report 6772027-6 (Version None)
Quarter: 2010Q2

REPORT INFORMATION
  Report Type: 
  Country: None (occurrence: None)
  Receive Date: 20100611
  Receipt Date: 20100531
  Transmission Date: 20101027
  Serious: Yes (Hospitalization)
  Sender: FDA-Public Use
  Company Number: GRP10000050

PATIENT
  Age: 83 Year
  Sex: Female

DRUGS (12)
  1. ACTONEL WITH CALCIUM (COPACKAGED) [Suspect]
     Indication: OSTEOPOROSIS
     Dosage: 1 DOSE FORM DAILY CYCLICALLY, ORAL
     Route: 048
     Dates: end: 20090422
  2. DEKRISTOL (COLECALCIFEROL) [Suspect]
     Indication: OSTEOPOROSIS
     Dosage: 20000 IU, EVERY 2WK, ORAL
     Route: 048
  3. EINSALPHA (ALFACALCIDOL) [Suspect]
     Indication: OSTEOPOROSIS
     Dosage: 0.25 UG, ORAL
     Route: 048
     Dates: end: 20090430
  4. CALCIUM (CALCIUM) [Suspect]
     Indication: OSTEOPOROSIS
     Dosage: 1000 MG, ORAL
     Route: 048
  5. BERLOSIN (METAMIZOLE SODIUM) [Concomitant]
  6. ASPIRIN [Concomitant]
  7. EZETIMIBE [Concomitant]
  8. METOPROLOL SUCCINATE [Concomitant]
  9. ARLEVERT (CINNARIZINE, DIMENHYDRINATE) [Concomitant]
  10. ARCOXIA [Concomitant]
  11. FUROSEMIDE [Concomitant]
  12. ACETAMINOPHEN [Concomitant]

REACTIONS (15)
  - ACTIVATED PARTIAL THROMBOPLASTIN TIME SHORTENED [None]
  - BLOOD CREATININE INCREASED [None]
  - BLOOD POTASSIUM DECREASED [None]
  - C-REACTIVE PROTEIN INCREASED [None]
  - CREATININE RENAL CLEARANCE DECREASED [None]
  - DEHYDRATION [None]
  - DRUG EFFECT DECREASED [None]
  - HAEMATOCRIT DECREASED [None]
  - HAEMOGLOBIN DECREASED [None]
  - HYPERCALCAEMIA [None]
  - HYPERTENSION [None]
  - PLATELET COUNT DECREASED [None]
  - SOMNOLENCE [None]
  - TONGUE DRY [None]
  - VITAMIN D INCREASED [None]
